FAERS Safety Report 14612721 (Version 1)
Quarter: 2018Q1

REPORT INFORMATION
  Report Type: Spontaneous
  Country: US (occurrence: US)
  Receive Date: 20180307
  Receipt Date: 20180307
  Transmission Date: 20180509
  Serious: No
  Sender: FDA-Public Use
  Company Number: None

PATIENT
  Age: 65 Year
  Sex: Male

DRUGS (9)
  1. URSODIOL. [Concomitant]
     Active Substance: URSODIOL
  2. LEVOTHYROXIN [Concomitant]
     Active Substance: LEVOTHYROXINE
  3. ATORVASTATIN [Concomitant]
     Active Substance: ATORVASTATIN
  4. LIOTHYRONINE [Concomitant]
     Active Substance: LIOTHYRONINE
  5. VRAYLAR [Concomitant]
     Active Substance: CARIPRAZINE
  6. LITHIUM CARB [Concomitant]
     Active Substance: LITHIUM CARBONATE
  7. POLYMYXIN B. [Concomitant]
     Active Substance: POLYMYXIN B
  8. OCALIVA [Suspect]
     Active Substance: OBETICHOLIC ACID
     Indication: PRIMARY BILIARY CHOLANGITIS
     Route: 048
     Dates: start: 20170227
  9. QUETIPINE [Concomitant]
     Active Substance: QUETIAPINE

REACTIONS (1)
  - Wrong technique in product usage process [None]
